FAERS Safety Report 4671074-8 (Version None)
Quarter: 2005Q2

REPORT INFORMATION
  Report Type: 
  Country: None (occurrence: None)
  Receive Date: 20050523
  Receipt Date: 20050510
  Transmission Date: 20051028
  Serious: Yes (Hospitalization)
  Sender: FDA-Public Use
  Company Number: DEU-2005-0001408

PATIENT
  Age: 68 Year
  Sex: Male

DRUGS (2)
  1. MST CONTINUS (MORPHINE SULFATE)CR CAPSULE DAILY [Suspect]
     Dosage: 80 MG DAILY ORAL
     Route: 048
     Dates: start: 20050201
  2. AMINEURIN (AMITRIPTYLINE HYDROCHLORIDE) [Suspect]

REACTIONS (4)
  - CONDITION AGGRAVATED [None]
  - DECREASED APPETITE [None]
  - PNEUMONIA [None]
  - URINARY RETENTION [None]
